FAERS Safety Report 9727471 (Version 1)
Quarter: 2013Q4

REPORT INFORMATION
  Report Type: Spontaneous
  Country: JP (occurrence: None)
  Receive Date: 20131127
  Receipt Date: 20131127
  Transmission Date: 20140711
  Serious: Yes (Other)
  Sender: FDA-Public Use
  Company Number: JP-2013-14476

PATIENT
  Age: 77 Year
  Sex: Female

DRUGS (1)
  1. PLETAL (CILOSTAZOL) UNKNOWN [Suspect]
     Indication: INTERMITTENT CLAUDICATION
     Route: 048

REACTIONS (6)
  - Dyslalia [None]
  - VIIth nerve paralysis [None]
  - Muscular weakness [None]
  - Hypoaesthesia [None]
  - Transient ischaemic attack [None]
  - Large intestinal ulcer [None]
